FAERS Safety Report 21288017 (Version 4)
Quarter: 2024Q2

REPORT INFORMATION
  Report Type: Report from Study
  Country: US (occurrence: US)
  Receive Date: 20220902
  Receipt Date: 20240420
  Transmission Date: 20240716
  Serious: Yes (Hospitalization)
  Sender: FDA-Public Use
  Company Number: US-ABBVIE-22K-163-4489185-00

PATIENT
  Age: 69 Year
  Sex: Female

DRUGS (5)
  1. VENCLEXTA [Suspect]
     Active Substance: VENETOCLAX
     Indication: Amyloidosis
     Dosage: FORM STRENGTH: 100 MILLIGRAM
     Route: 048
  2. VENCLEXTA [Suspect]
     Active Substance: VENETOCLAX
     Indication: Amyloidosis
     Dosage: TAKE 4 TABLET(S) BY MOUTH ONCE DAILY, FORM STRENGTH: 100 MILLIGRAM?DO NOT TAKE UNTIL COMPLETE ANT...
     Route: 048
  3. VENCLEXTA [Suspect]
     Active Substance: VENETOCLAX
     Indication: Amyloidosis
     Dosage: FORM STRENGTH: 100 MILLIGRAM
     Route: 048
  4. VENCLEXTA [Suspect]
     Active Substance: VENETOCLAX
     Indication: Amyloidosis
     Route: 048
  5. VENCLEXTA [Suspect]
     Active Substance: VENETOCLAX
     Indication: Amyloidosis
     Dosage: FORM STRENGTH: 100 MILLIGRAM
     Route: 048

REACTIONS (7)
  - Cerebrovascular accident [Unknown]
  - Off label use [Unknown]
  - Illness [Unknown]
  - Pain [Unknown]
  - Bronchitis viral [Unknown]
  - Incorrect dose administered [Unknown]
  - Dizziness [Unknown]

NARRATIVE: CASE EVENT DATE: 20231201
